FAERS Safety Report 15803512 (Version 1)
Quarter: 2019Q1

REPORT INFORMATION
  Report Type: Spontaneous
  Country: US (occurrence: US)
  Receive Date: 20190109
  Receipt Date: 20190109
  Transmission Date: 20190417
  Serious: No
  Sender: FDA-Public Use
  Company Number: US-TEVA-2018-US-987739

PATIENT
  Sex: Female

DRUGS (2)
  1. DICYCLOMINE HCL ACTAVIS [Suspect]
     Active Substance: DICYCLOMINE HYDROCHLORIDE
     Indication: IRRITABLE BOWEL SYNDROME
     Route: 065
  2. DICYCLOMINE HCL ACTAVIS [Suspect]
     Active Substance: DICYCLOMINE HYDROCHLORIDE
     Indication: DYSPEPSIA

REACTIONS (3)
  - Product substitution issue [Unknown]
  - Gastrointestinal disorder [Unknown]
  - Drug ineffective [Unknown]
